FAERS Safety Report 18917931 (Version 1)
Quarter: 2021Q1

REPORT INFORMATION
  Report Type: Report from Study
  Country: US (occurrence: US)
  Receive Date: 20210219
  Receipt Date: 20210219
  Transmission Date: 20210420
  Serious: Yes (Other)
  Sender: FDA-Public Use
  Company Number: US-SHIRE-US202000417

PATIENT
  Age: 66 Year
  Sex: Female

DRUGS (1)
  1. GAMMAGARD LIQUID [Suspect]
     Active Substance: HUMAN IMMUNOGLOBULIN G
     Indication: PRIMARY IMMUNODEFICIENCY SYNDROME
     Dosage: 8 GRAM, 1X/WEEK
     Route: 065

REACTIONS (31)
  - Upper limb fracture [Unknown]
  - B-lymphocyte abnormalities [Unknown]
  - Dysstasia [Unknown]
  - Pain [Unknown]
  - Balance disorder [Unknown]
  - Fatigue [Unknown]
  - Epistaxis [Unknown]
  - Joint injury [Unknown]
  - Gait disturbance [Unknown]
  - Sensitive skin [Unknown]
  - Back pain [Unknown]
  - Sleep apnoea syndrome [Unknown]
  - Asthenia [Not Recovered/Not Resolved]
  - Pain in extremity [Unknown]
  - Needle issue [Unknown]
  - Malaise [Unknown]
  - Autoimmune thyroiditis [Unknown]
  - Spinal osteoarthritis [Not Recovered/Not Resolved]
  - Vestibular disorder [Unknown]
  - Hypersensitivity [Unknown]
  - Meniere^s disease [Unknown]
  - Autoimmune disorder [Unknown]
  - Pulmonary function test decreased [Not Recovered/Not Resolved]
  - T-lymphocyte count decreased [Not Recovered/Not Resolved]
  - Infusion site pain [Unknown]
  - Fall [Unknown]
  - Spinal disorder [Not Recovered/Not Resolved]
  - Upper respiratory tract infection [Not Recovered/Not Resolved]
  - Sinusitis [Not Recovered/Not Resolved]
  - Arthralgia [Unknown]
  - Tooth fracture [Unknown]

NARRATIVE: CASE EVENT DATE: 201911
